FAERS Safety Report 4462345-9 (Version None)
Quarter: 2004Q3

REPORT INFORMATION
  Report Type: 
  Country: None (occurrence: None)
  Receive Date: 20040924
  Receipt Date: 20040414
  Transmission Date: 20050211
  Serious: Yes (Hospitalization)
  Sender: FDA-Public Use
  Company Number: TRP_0009_2004

PATIENT
  Age: 21 Year
  Sex: Female
  Weight: 54.4316 kg

DRUGS (18)
  1. RIBAVIRIN/THREE RIVERS/200 MG [Suspect]
     Indication: HEPATITIS C
     Dosage: 800 MG QDAY PO
     Route: 048
     Dates: start: 20040130
  2. RIBAVIRIN/THREE RIVERS/200MG [Suspect]
     Indication: HEPATITIS C
     Dosage: 400 MG QDAY PO
     Route: 048
     Dates: start: 20040111, end: 20040117
  3. RIBAVIRIN/THREE RIVERS/200MG [Suspect]
     Indication: HEPATITIS C
     Dosage: 800 MG QDAY PO
     Route: 048
     Dates: start: 20040108, end: 20040111
  4. RIBAVIRIN/THREE RIVERS/200MG [Suspect]
     Indication: HEPATITIS C
     Dosage: 600 MG QDAY PO
     Route: 048
     Dates: start: 20031219, end: 20040108
  5. RIBAVIRIN/THREE RIVERS/200MG [Suspect]
     Indication: HEPATITIS C
     Dosage: 1000 MG QDAY PO
     Route: 048
     Dates: start: 20031105, end: 20031219
  6. INTERFERON ALFACON-1/INFERGEN/INTERMUNE/15MCG [Suspect]
     Indication: HEPATITIS C
     Dosage: 1000 MG QDAY PO
     Route: 048
     Dates: start: 20031105, end: 20031219
  7. INTERFERON ALFACON-1/INFERGEN/INTERMUNE/15MCG [Suspect]
     Indication: HEPATITIS C
     Dosage: DF SC
     Route: 058
     Dates: start: 20040130, end: 20040201
  8. INTERFERON ALFACON-1/INFERGEN/INTERMUNE/15MCG [Suspect]
     Indication: HEPATITIS C
     Dosage: 12 MCG 3XWK SC
     Route: 058
     Dates: start: 20040115, end: 20040301
  9. INTERFERON ALFACON-1/INFERGEN/INTERMUNE/15MCG [Suspect]
     Indication: HEPATITIS C
     Dosage: 15 MCG 3XWK SC
     Route: 058
     Dates: start: 20031105, end: 20040114
  10. PROCRIT [Suspect]
     Indication: ANAEMIA
     Dosage: 40000 U ONCE SC
     Route: 058
     Dates: start: 20040405, end: 20040405
  11. PROCRIT [Suspect]
     Indication: ANAEMIA
     Dosage: 40000 U ONCE SC
     Route: 058
     Dates: start: 20040329, end: 20040329
  12. ALESSE [Concomitant]
  13. ZOLOFT [Concomitant]
  14. ZOFRAN [Concomitant]
  15. AMBIEN [Concomitant]
  16. VITAMIN E [Concomitant]
  17. ORAL CONTRACEPTIVES [Concomitant]
  18. FOLIC ACID [Concomitant]

REACTIONS (14)
  - ASTHENIA [None]
  - BLOOD POTASSIUM DECREASED [None]
  - CONVULSION [None]
  - DIFFICULTY IN WALKING [None]
  - FEELING ABNORMAL [None]
  - HAEMATOCRIT DECREASED [None]
  - HAEMOGLOBIN DECREASED [None]
  - LETHARGY [None]
  - LOSS OF CONSCIOUSNESS [None]
  - LYMPHOCYTE COUNT INCREASED [None]
  - MONOCYTE COUNT INCREASED [None]
  - MYOCLONUS [None]
  - NEUTROPHIL COUNT ABNORMAL [None]
  - TREMOR [None]
